APPROVED DRUG PRODUCT: KYZATREX
Active Ingredient: TESTOSTERONE UNDECANOATE
Strength: 200MG
Dosage Form/Route: CAPSULE;ORAL
Application: N213953 | Product #003
Applicant: MARIUS PHARMACEUTICALS INC
Approved: Jul 27, 2022 | RLD: Yes | RS: Yes | Type: RX

PATENTS:
Patent 12403146 | Expires: Mar 29, 2041
Patent 11617758 | Expires: Mar 15, 2033
Patent 12357643 | Expires: Mar 15, 2033
Patent 10576089 | Expires: Dec 31, 2030
Patent 11590146 | Expires: Dec 31, 2030
Patent 10576090 | Expires: Dec 31, 2030